FAERS Safety Report 19905569 (Version 14)
Quarter: 2022Q1

REPORT INFORMATION
  Report Type: Spontaneous
  Country: US (occurrence: US)
  Receive Date: 20211001
  Receipt Date: 20220106
  Transmission Date: 20220424
  Serious: Yes (Other)
  Sender: FDA-Public Use
  Company Number: US-UNITED THERAPEUTICS-UNT-2021-019287

PATIENT
  Sex: Male
  Weight: 74.376 kg

DRUGS (20)
  1. REMODULIN [Suspect]
     Active Substance: TREPROSTINIL
     Indication: Pulmonary arterial hypertension
     Dosage: UNK, CONTINUING
     Route: 058
     Dates: start: 20210923
  2. REMODULIN [Suspect]
     Active Substance: TREPROSTINIL
     Dosage: 0.007 ?G/KG, CONTINUING (PRE-FILLED WITH 3ML PER CASSETTE, RATE OF 31 MCL/HOUR)
     Route: 058
     Dates: start: 202109
  3. REMODULIN [Suspect]
     Active Substance: TREPROSTINIL
     Dosage: 0.008 ?G/KG, CONTINUING (PRE-FILLED WITH 3ML PER CASSETTE, RATE OF 36 MCL/HOUR)
     Route: 058
     Dates: start: 2021
  4. REMODULIN [Suspect]
     Active Substance: TREPROSTINIL
     Indication: Pulmonary arterial hypertension
     Dosage: 0.009 ?G/KG, CONTINUING (PRE-FILLED WITH 3ML PER CASSETTE, RATE OF 36 MCL/HOUR)
     Route: 058
     Dates: start: 2021
  5. REMODULIN [Suspect]
     Active Substance: TREPROSTINIL
     Dosage: UNK, CONTINUING (PRE-FILLED WITH 2.2 ML/CASSETTE, PUMP RATE 16 MCL/HOUR)
     Route: 058
     Dates: start: 2021
  6. REMODULIN [Suspect]
     Active Substance: TREPROSTINIL
     Dosage: 0.010 ?G/KG, CONTINUING (PRE-FILLED WITH 2.2 ML PER CASSETTE, RATE OF 18 MCL/HOUR)
     Route: 058
     Dates: start: 2021
  7. REMODULIN [Suspect]
     Active Substance: TREPROSTINIL
     Dosage: 0.010 ?G/KG, CONTINUING (PRE-FILLED WITH 3 ML PER CASSETTE, RATE OF 18 MCL/HOUR)
     Route: 058
     Dates: start: 2021
  8. REMODULIN [Suspect]
     Active Substance: TREPROSTINIL
     Dosage: 0.0145 ?G/KG, CONTINUING (PRE-FILLED WITH 3 ML PER CASSETTE, PUMP RATE 26 MCL/HOUR)
     Route: 058
     Dates: start: 2021
  9. REMODULIN [Suspect]
     Active Substance: TREPROSTINIL
     Dosage: 0.0145 ?G/KG, CONTINUING (PRE-FILLED WITH 3 ML PER CASSETTE, PUMP RATE 28 MCL/HOUR)
     Route: 058
     Dates: start: 2021
  10. REMODULIN [Suspect]
     Active Substance: TREPROSTINIL
     Dosage: 0.01568 ?G/KG, CONTINUING (PRE-FILLED WITH 3 ML/CASSETTE, RATE OF 30 MCL/HOUR)
     Route: 058
     Dates: start: 2021
  11. REMODULIN [Suspect]
     Active Substance: TREPROSTINIL
     Dosage: 0.017 ?G/KG, CONTINUING (PRE-FILLED WITH 3 ML/CASSETTE, RATE OF 30 MCL/HOUR)
     Route: 058
     Dates: start: 2021
  12. REMODULIN [Suspect]
     Active Substance: TREPROSTINIL
     Dosage: 0.018 ?G/KG, CONTINUING (PRE-FILLED WITH 3 ML/CASSETTE,  AT PUMP RATE OF 32 MCL/HOUR)
     Route: 058
     Dates: start: 2021
  13. REMODULIN [Suspect]
     Active Substance: TREPROSTINIL
     Dosage: UNK, CONTINUING
     Route: 058
     Dates: start: 2021
  14. REMODULIN [Suspect]
     Active Substance: TREPROSTINIL
     Indication: Pulmonary arterial hypertension
     Dosage: UNK, CONTINUING
     Route: 058
     Dates: start: 2021
  15. REMODULIN [Suspect]
     Active Substance: TREPROSTINIL
     Dosage: 0.030 ?G/KG, CONTINUING (PRE-FILLED WITH 2.8 ML PER CASSETTE, RATE OF 27 MCL/HOUR)
     Route: 058
     Dates: start: 2021
  16. REMODULIN [Suspect]
     Active Substance: TREPROSTINIL
     Indication: Pulmonary arterial hypertension
     Dosage: UNK, CONTINUING (AT AN INFUSION RATE OF 0.022 ML/H)
     Route: 041
     Dates: start: 2021, end: 2021
  17. LECITHIN\POLOXAMER 407 [Suspect]
     Active Substance: LECITHIN\POLOXAMER 407
     Indication: Product used for unknown indication
     Dosage: UNK
     Route: 065
  18. TADALAFIL [Concomitant]
     Active Substance: TADALAFIL
     Indication: Product used for unknown indication
     Dosage: UNK
     Route: 065
  19. OPSUMIT [Concomitant]
     Active Substance: MACITENTAN
     Indication: Product used for unknown indication
     Dosage: UNK
     Route: 065
  20. UPTRAVI [Concomitant]
     Active Substance: SELEXIPAG
     Indication: Product used for unknown indication
     Dosage: UNK
     Route: 065

REACTIONS (26)
  - Pulmonary arterial hypertension [Unknown]
  - Device dislocation [Recovered/Resolved]
  - Infusion site pain [Not Recovered/Not Resolved]
  - Arthralgia [Unknown]
  - Headache [Unknown]
  - Back pain [Unknown]
  - Asthenia [Unknown]
  - Neck pain [Unknown]
  - Dizziness postural [Recovered/Resolved]
  - Infusion site swelling [Not Recovered/Not Resolved]
  - Swelling [Not Recovered/Not Resolved]
  - Infusion site erythema [Not Recovered/Not Resolved]
  - Infusion site haemorrhage [Unknown]
  - Device adhesion issue [Unknown]
  - Dyspnoea [Unknown]
  - Dizziness [Unknown]
  - Blister [Unknown]
  - Device failure [Recovered/Resolved]
  - Device power source issue [Recovered/Resolved]
  - Product administration interrupted [Recovered/Resolved]
  - Device failure [Unknown]
  - Device failure [Unknown]
  - Device failure [Unknown]
  - Device failure [Unknown]
  - Device failure [Unknown]
  - Device failure [Unknown]

NARRATIVE: CASE EVENT DATE: 20210101
